FAERS Safety Report 16366757 (Version 1)
Quarter: 2019Q2

REPORT INFORMATION
  Report Type: Spontaneous
  Country: US (occurrence: US)
  Receive Date: 20190529
  Receipt Date: 20190529
  Transmission Date: 20190711
  Serious: No
  Sender: FDA-Public Use
  Company Number: US-SA-2019SA139502

PATIENT
  Age: 76 Year
  Sex: Female

DRUGS (1)
  1. ALLEGRA [Suspect]
     Active Substance: FEXOFENADINE HYDROCHLORIDE
     Indication: VIRAL INFECTION
     Dosage: 60 MG, QD
     Route: 065
     Dates: start: 20190515

REACTIONS (2)
  - Product use complaint [Unknown]
  - Tension [Unknown]
